FAERS Safety Report 17255477 (Version 2)
Quarter: 2020Q1

REPORT INFORMATION
  Report Type: Spontaneous
  Country: JP (occurrence: JP)
  Receive Date: 20200110
  Receipt Date: 20200121
  Transmission Date: 20200409
  Serious: No
  Sender: FDA-Public Use
  Company Number: JP-UCBSA-2020001319

PATIENT
  Age: 9 Year
  Sex: Female
  Weight: 25 kg

DRUGS (8)
  1. ETHOSUXIMIDE. [Concomitant]
     Active Substance: ETHOSUXIMIDE
     Route: 065
  2. E KEPPRA [Suspect]
     Active Substance: LEVETIRACETAM
     Indication: OFF LABEL USE
     Dosage: 700 MG DAILY
     Route: 048
     Dates: start: 201912
  3. ETHOSUXIMIDE. [Concomitant]
     Active Substance: ETHOSUXIMIDE
     Route: 065
  4. E KEPPRA [Suspect]
     Active Substance: LEVETIRACETAM
     Indication: MYOCLONIC EPILEPSY
     Dosage: 500 MG DAILY
     Route: 048
     Dates: start: 201711
  5. ETHOSUXIMIDE. [Concomitant]
     Active Substance: ETHOSUXIMIDE
     Route: 065
     Dates: start: 201711
  6. ETHOSUXIMIDE. [Concomitant]
     Active Substance: ETHOSUXIMIDE
     Indication: PRODUCT USED FOR UNKNOWN INDICATION
     Route: 065
  7. ETHOSUXIMIDE. [Concomitant]
     Active Substance: ETHOSUXIMIDE
     Route: 065
     Dates: start: 201909
  8. ETHOSUXIMIDE. [Concomitant]
     Active Substance: ETHOSUXIMIDE
     Route: 065
     Dates: start: 201912

REACTIONS (3)
  - Off label use [Unknown]
  - Drug level decreased [Unknown]
  - Drug ineffective [Unknown]

NARRATIVE: CASE EVENT DATE: 201711
